FAERS Safety Report 7363963-0 (Version None)
Quarter: 2011Q1

REPORT INFORMATION
  Report Type: 
  Country: None (occurrence: None)
  Receive Date: 20110321
  Receipt Date: 20100722
  Transmission Date: 20110831
  Serious: Yes (Hospitalization)
  Sender: FDA-Public Use
  Company Number: US-TYCO HEALTHCARE/MALLINCKRODT-T201001680

PATIENT
  Age: 25 Year
  Sex: Female

DRUGS (2)
  1. METHADOSE [Suspect]
     Dosage: 80 MG, QD
     Route: 048
  2. METHADOSE [Suspect]
     Dosage: 100 MG, QD
     Route: 048

REACTIONS (2)
  - CARDIAC ARREST [None]
  - TORSADE DE POINTES [None]
